FAERS Safety Report 12537450 (Version 1)
Quarter: 2016Q3

REPORT INFORMATION
  Report Type: Spontaneous
  Country: DE (occurrence: DE)
  Receive Date: 20160707
  Receipt Date: 20160707
  Transmission Date: 20161109
  Serious: Yes (Other)
  Sender: FDA-Public Use
  Company Number: DE-PFIZER INC-2016296536

PATIENT
  Age: 71 Year
  Sex: Female
  Weight: 50 kg

DRUGS (4)
  1. PREDNISOLONE. [Concomitant]
     Active Substance: PREDNISOLONE
     Indication: VASCULITIS
     Dosage: 5 MG, 2X/DAY
  2. ZYVOXID [Suspect]
     Active Substance: LINEZOLID
     Dosage: 600 MG, UNK
     Route: 048
  3. CELLCEPT [Concomitant]
     Active Substance: MYCOPHENOLATE MOFETIL\MYCOPHENOLATE MOFETIL HYDROCHLORIDE
     Indication: VASCULITIS
     Dosage: 250 MG, UNK
  4. METOHEXAL SUCC [Concomitant]
     Active Substance: METOPROLOL SUCCINATE
     Indication: HYPERTENSION
     Dosage: 23.75 MG, UNK

REACTIONS (5)
  - Mucosal discolouration [Recovered/Resolved]
  - Dry mouth [Recovered/Resolved]
  - Oropharyngeal discomfort [Recovered/Resolved]
  - Stomatitis [Recovered/Resolved]
  - Eyelid disorder [Recovered/Resolved]
